APPROVED DRUG PRODUCT: DANAZOL
Active Ingredient: DANAZOL
Strength: 200MG
Dosage Form/Route: CAPSULE;ORAL
Application: A077246 | Product #001 | TE Code: AB
Applicant: LANNETT CO INC
Approved: Sep 28, 2005 | RLD: No | RS: No | Type: RX